FAERS Safety Report 9879630 (Version 1)
Quarter: 2014Q1

REPORT INFORMATION
  Report Type: Spontaneous
  Country: US (occurrence: US)
  Receive Date: 20140206
  Receipt Date: 20140206
  Transmission Date: 20141002
  Serious: Yes (Other)
  Sender: FDA-Public Use
  Company Number: US-RB-063057-14

PATIENT
  Age: 0 None
  Sex: 0

DRUGS (19)
  1. SUBOXONE TABLET [Suspect]
     Indication: DRUG DEPENDENCE
     Route: 064
     Dates: start: 201212, end: 20130128
  2. SUBOXONE FILM [Suspect]
     Indication: PRODUCT USED FOR UNKNOWN INDICATION
     Dosage: SUBOXONE FILM; DOSING DETAILS UNKNOWN
     Route: 064
     Dates: end: 20130107
  3. SUBUTEX [Suspect]
     Indication: DRUG DEPENDENCE
     Route: 064
     Dates: start: 20130128, end: 20130717
  4. SUBUTEX [Suspect]
     Route: 063
     Dates: start: 20130717
  5. NICOTINE [Concomitant]
     Dosage: 15 CIGARETTES DAILY
     Route: 064
     Dates: start: 201212, end: 20130717
  6. NICOTINE [Concomitant]
     Indication: PRODUCT USED FOR UNKNOWN INDICATION
     Dosage: 15 CIGARETTES DAILY
     Route: 063
     Dates: start: 20130717
  7. PRENATAL VITAMINS [Concomitant]
     Indication: PRENATAL CARE
     Route: 064
     Dates: start: 20130117, end: 20130717
  8. VENTOLIN [Concomitant]
     Indication: PRODUCT USED FOR UNKNOWN INDICATION
     Dosage: TAKING 4 TIMES A DAY, FURTHER DOSING DETAILS UNKNOWN
     Route: 064
     Dates: start: 201212, end: 20130717
  9. ALBUTEROL SULFATE [Concomitant]
     Indication: PRODUCT USED FOR UNKNOWN INDICATION
     Dosage: TAKING 4 TIMES DAILY AS NEEDED
     Route: 064
     Dates: start: 201212, end: 201307
  10. ALBUTEROL SULFATE [Concomitant]
     Dosage: 2 PUFFS
     Route: 064
  11. ALBUTEROL SULFATE [Concomitant]
     Route: 063
     Dates: start: 20130717
  12. LANTUS [Concomitant]
     Dosage: TAKING 24 UNITS IN THE EVENING OR AFTERNOON
     Route: 064
     Dates: start: 201212, end: 20130717
  13. LANTUS [Concomitant]
     Indication: PRODUCT USED FOR UNKNOWN INDICATION
     Dosage: TAKING 24 UNITS IN THE EVENING OR AFTERNOON
     Route: 063
     Dates: start: 20130717
  14. HUMULIN R [Concomitant]
     Dosage: TAKING 4 UNITS
     Route: 064
     Dates: start: 20130408, end: 20130717
  15. HUMULIN R [Concomitant]
     Indication: PRODUCT USED FOR UNKNOWN INDICATION
     Dosage: TAKING 4 UNITS
     Route: 063
     Dates: start: 20130717
  16. ZOFRAN [Concomitant]
     Indication: VOMITING
     Dosage: TAKING 4 MG AS NEEDED
     Route: 064
     Dates: start: 20130131, end: 20130717
  17. ZOFRAN [Concomitant]
     Indication: NAUSEA
     Dosage: TAKING 4 MG AS NEEDED
     Route: 063
     Dates: start: 20130717
  18. VASOTEC [Concomitant]
     Indication: PRODUCT USED FOR UNKNOWN INDICATION
     Dosage: DOSING DETAILS UNKNOWN
     Route: 063
     Dates: start: 20131028
  19. LASIX [Concomitant]
     Indication: PRODUCT USED FOR UNKNOWN INDICATION
     Dosage: FURTHER DOSING DETAILS UNKNOWN
     Route: 063
     Dates: start: 20131028

REACTIONS (3)
  - Foetal exposure during pregnancy [Recovered/Resolved]
  - Premature baby [Recovered/Resolved]
  - Exposure during breast feeding [Not Recovered/Not Resolved]
